FAERS Safety Report 16511175 (Version 1)
Quarter: 2019Q3

REPORT INFORMATION
  Report Type: Spontaneous
  Country: US (occurrence: US)
  Receive Date: 20190701
  Receipt Date: 20190701
  Transmission Date: 20191004
  Serious: Yes (Hospitalization, Disabling)
  Sender: FDA-Public Use
  Company Number: None

PATIENT
  Age: 60 Year
  Sex: Male
  Weight: 58.5 kg

DRUGS (3)
  1. AMLODIPINE [Concomitant]
     Active Substance: AMLODIPINE BESYLATE
  2. FINESTERIDE [Suspect]
     Active Substance: FINASTERIDE
  3. AMLODIPINE [Concomitant]
     Active Substance: AMLODIPINE BESYLATE

REACTIONS (10)
  - Male orgasmic disorder [None]
  - Retrograde ejaculation [None]
  - Eyelid margin crusting [None]
  - Gynaecomastia [None]
  - Eye swelling [None]
  - Pruritus [None]
  - Loss of libido [None]
  - Swelling face [None]
  - Marital problem [None]
  - Erectile dysfunction [None]

NARRATIVE: CASE EVENT DATE: 20181225
